FAERS Safety Report 16040201 (Version 2)
Quarter: 2019Q2

REPORT INFORMATION
  Report Type: Spontaneous
  Country: GR (occurrence: GR)
  Receive Date: 20190306
  Receipt Date: 20190403
  Transmission Date: 20190711
  Serious: Yes (Hospitalization, Other)
  Sender: FDA-Public Use
  Company Number: GR-PFIZER INC-2019097477

PATIENT
  Age: 19 Year
  Sex: Male

DRUGS (2)
  1. DOXYCYCLINE MONOHYDRATE [Suspect]
     Active Substance: DOXYCYCLINE
     Indication: LEPTOSPIROSIS
     Dosage: UNK
  2. CEFTRIAXONE. [Suspect]
     Active Substance: CEFTRIAXONE
     Indication: LEPTOSPIROSIS
     Dosage: UNK

REACTIONS (4)
  - Disease progression [Recovered/Resolved]
  - Multiple organ dysfunction syndrome [Recovered/Resolved]
  - Weil^s disease [Recovered/Resolved]
  - Shock [Recovered/Resolved]
